FAERS Safety Report 8380513-0 (Version None)
Quarter: 2012Q2

REPORT INFORMATION
  Report Type: 
  Country: None (occurrence: None)
  Receive Date: 20120523
  Receipt Date: 20120520
  Transmission Date: 20120825
  Serious: Yes (Hospitalization, Other)
  Sender: FDA-Public Use
  Company Number: IQ-GLAXOSMITHKLINE-B0803057A

PATIENT
  Age: 24 Year
  Sex: Female

DRUGS (1)
  1. FLUTICASONE PROPIONATE/SALMETEROL [Suspect]
     Indication: ASTHMA
     Route: 055
     Dates: start: 20110201, end: 20120509

REACTIONS (3)
  - SUPRAVENTRICULAR TACHYCARDIA [None]
  - PALPITATIONS [None]
  - CHEST PAIN [None]
